FAERS Safety Report 7716769-4 (Version None)
Quarter: 2011Q3

REPORT INFORMATION
  Report Type: 
  Country: None (occurrence: None)
  Receive Date: 20110829
  Receipt Date: 20110822
  Transmission Date: 20111222
  Serious: Yes (Death, Other)
  Sender: FDA-Public Use
  Company Number: US-BAXTER-2011BH027236

PATIENT

DRUGS (1)
  1. BREVIBLOC [Suspect]
     Indication: PRODUCT USED FOR UNKNOWN INDICATION
     Route: 065
     Dates: start: 20110817

REACTIONS (4)
  - BRADYCARDIA [None]
  - HYPOTENSION [None]
  - DEATH [None]
  - CARDIAC ARREST [None]
